FAERS Safety Report 24458879 (Version 1)
Quarter: 2024Q4

REPORT INFORMATION
  Report Type: Spontaneous
  Country: US (occurrence: None)
  Receive Date: 20241017
  Receipt Date: 20241017
  Transmission Date: 20250115
  Serious: No
  Sender: Public
  Company Number: None

PATIENT
  Age: 67 Year
  Sex: Female

DRUGS (1)
  1. FINERENONE [Suspect]
     Active Substance: FINERENONE
     Indication: Diabetes mellitus
     Dates: start: 20240215, end: 20240424

REACTIONS (4)
  - Alopecia [None]
  - Decreased appetite [None]
  - Swelling [None]
  - Peripheral swelling [None]

NARRATIVE: CASE EVENT DATE: 20240424
